FAERS Safety Report 12754324 (Version 1)
Quarter: 2016Q3

REPORT INFORMATION
  Report Type: Spontaneous
  Country: US (occurrence: US)
  Receive Date: 20160916
  Receipt Date: 20160916
  Transmission Date: 20161109
  Serious: Yes (Other)
  Sender: FDA-Public Use
  Company Number: US-TEVA-692547USA

PATIENT

DRUGS (1)
  1. ACETAMINOPHEN W/HYDROCODONE [Suspect]
     Active Substance: ACETAMINOPHEN\HYDROCODONE
     Dosage: 325MG/5MG

REACTIONS (5)
  - Product physical issue [Unknown]
  - Anaphylactic shock [Recovering/Resolving]
  - Hypokinesia [Unknown]
  - Throat tightness [Unknown]
  - Dyspnoea [Unknown]
